FAERS Safety Report 6256901-5 (Version None)
Quarter: 2009Q3

REPORT INFORMATION
  Report Type: 
  Country: None (occurrence: None)
  Receive Date: 20090706
  Receipt Date: 20090625
  Transmission Date: 20100115
  Serious: Yes (Other)
  Sender: FDA-Public Use
  Company Number: CA-JNJFOC-20090608862

PATIENT
  Age: 74 Year
  Sex: Female

DRUGS (1)
  1. REMINYL [Suspect]
     Indication: DEMENTIA
     Route: 065
     Dates: start: 20090429

REACTIONS (3)
  - FALL [None]
  - HUMERUS FRACTURE [None]
  - SYNCOPE [None]
